FAERS Safety Report 17845079 (Version 1)
Quarter: 2020Q2

REPORT INFORMATION
  Report Type: Spontaneous
  Country: US (occurrence: US)
  Receive Date: 20200601
  Receipt Date: 20200601
  Transmission Date: 20200714
  Serious: No
  Sender: FDA-Public Use
  Company Number: US-AUROBINDO-AUR-APL-2019-024943

PATIENT
  Age: 57 Year
  Weight: 92 kg

DRUGS (2)
  1. DICLOFENAC [Concomitant]
     Active Substance: DICLOFENAC
     Indication: PRODUCT USED FOR UNKNOWN INDICATION
     Dosage: UNK
     Route: 065
  2. HYDROCODONE BITARTRATE AND ACETAMINOPHEN 10/325MG [Suspect]
     Active Substance: ACETAMINOPHEN\HYDROCODONE BITARTRATE
     Indication: PRODUCT USED FOR UNKNOWN INDICATION
     Dosage: 1 DOSAGE FORM, 3 TIMES A DAY1 DOSAGE FORM, 3 TIMES A DAY(5^O^CLOCK 1^O^CLOCK,9^O^CLOCK)
     Route: 065

REACTIONS (3)
  - Therapeutic response shortened [Unknown]
  - Breakthrough pain [Unknown]
  - Product substitution issue [Unknown]

NARRATIVE: CASE EVENT DATE: 201905
